FAERS Safety Report 6795410-1 (Version None)
Quarter: 2010Q2

REPORT INFORMATION
  Report Type: 
  Country: None (occurrence: None)
  Receive Date: 20100520
  Receipt Date: 20090713
  Transmission Date: 20101027
  Serious: Yes (Other)
  Sender: FDA-Public Use
  Company Number: 2009239868

PATIENT
  Age: 53 Year
  Sex: Female
  Weight: 57 kg

DRUGS (11)
  1. PROVERA [Suspect]
     Indication: HORMONE REPLACEMENT THERAPY
     Dosage: 5 MG, ORAL
     Route: 048
     Dates: start: 19950520, end: 19971201
  2. MEDROXYPROGESTERONE [Suspect]
     Indication: HORMONE REPLACEMENT THERAPY
     Dosage: 5 MG
     Dates: start: 19971202, end: 19981018
  3. PREMARIN [Suspect]
     Indication: HORMONE REPLACEMENT THERAPY
     Dosage: 0.625 MG; 0.9 MG; 1.25 MG
     Dates: start: 19950520, end: 19981018
  4. PREMARIN [Suspect]
     Indication: HORMONE REPLACEMENT THERAPY
     Dosage: 0.625 MG; 0.9 MG; 1.25 MG
     Dates: start: 19981019, end: 19981021
  5. PREMARIN [Suspect]
     Indication: HORMONE REPLACEMENT THERAPY
     Dosage: 0.625 MG; 0.9 MG; 1.25 MG
     Dates: start: 19981022, end: 19981122
  6. AYGESTIN [Suspect]
     Indication: HORMONE REPLACEMENT THERAPY
     Dosage: 5 MG
     Dates: start: 19981019, end: 20011101
  7. VIVELLE-DOT [Suspect]
     Indication: HORMONE REPLACEMENT THERAPY
     Dosage: 0.1 MG
     Dates: start: 20001016, end: 20011104
  8. VIVELLE [Suspect]
     Indication: HORMONE REPLACEMENT THERAPY
     Dosage: 0.1 MG
     Dates: start: 19981123, end: 20001015
  9. VIVELLE [Suspect]
     Indication: HORMONE REPLACEMENT THERAPY
     Dosage: 0.1 MG
     Dates: start: 20011101
  10. LISINOPRIL AND HYDROCHLOROTHIAZIDE [Concomitant]
  11. IBANDRONATE SODIUM [Concomitant]

REACTIONS (1)
  - BREAST CANCER FEMALE [None]
